FAERS Safety Report 6221996-1 (Version None)
Quarter: 2009Q2

REPORT INFORMATION
  Report Type: 
  Country: None (occurrence: None)
  Receive Date: 20090608
  Receipt Date: 20090608
  Transmission Date: 20091009
  Serious: Yes (Other)
  Sender: FDA-Public Use
  Company Number: None

PATIENT
  Age: 44 Year
  Sex: Male
  Weight: 122.4712 kg

DRUGS (1)
  1. HUMIRA [Suspect]
     Indication: PSORIASIS
     Dosage: 40 BIWEEKLY SQ
     Route: 058
     Dates: start: 20081013, end: 20090605

REACTIONS (7)
  - DISEASE RECURRENCE [None]
  - HYPERSENSITIVITY [None]
  - PNEUMONIA [None]
  - PSORIASIS [None]
  - SINUSITIS [None]
  - UPPER RESPIRATORY TRACT INFECTION [None]
  - URTICARIA [None]
